FAERS Safety Report 15370127 (Version 1)
Quarter: 2018Q3

REPORT INFORMATION
  Report Type: Spontaneous
  Country: US (occurrence: US)
  Receive Date: 20180904
  Receipt Date: 20180904
  Transmission Date: 20181010
  Serious: Yes (Hospitalization)
  Sender: FDA-Public Use
  Company Number: None

PATIENT
  Age: 75 Year
  Sex: Male
  Weight: 75.96 kg

DRUGS (7)
  1. CAPECITABINE. [Suspect]
     Active Substance: CAPECITABINE
     Indication: OESOPHAGEAL CARCINOMA
     Route: 048
     Dates: start: 20180613, end: 20180828
  2. ASPIRIN 81MG [Concomitant]
     Active Substance: ASPIRIN
  3. HYDROCODONE/APAP 7.5/325MG [Concomitant]
  4. ATORVASTATIN 10MG [Concomitant]
     Active Substance: ATORVASTATIN
  5. TAMSULOSIN 0.4MG [Concomitant]
     Active Substance: TAMSULOSIN
  6. CAPECITABINE. [Suspect]
     Active Substance: CAPECITABINE
     Indication: OESOPHAGEAL CARCINOMA
     Route: 048
     Dates: start: 20180613, end: 20180828
  7. OMEPRAZOLE 20MG [Concomitant]
     Active Substance: OMEPRAZOLE

REACTIONS (2)
  - Thrombosis [None]
  - Joint swelling [None]

NARRATIVE: CASE EVENT DATE: 20180828
